FAERS Safety Report 13873993 (Version 1)
Quarter: 2017Q3

REPORT INFORMATION
  Report Type: Spontaneous
  Country: US (occurrence: US)
  Receive Date: 20170816
  Receipt Date: 20170816
  Transmission Date: 20171127
  Serious: No
  Sender: FDA-Public Use
  Company Number: GXBR2017US001163

PATIENT
  Age: 62 Year
  Sex: Female

DRUGS (2)
  1. METHIMAZOLE TABLETS, USP [Suspect]
     Active Substance: METHIMAZOLE
     Dosage: 10 MG, QOD
     Route: 065
     Dates: end: 20170322
  2. METHIMAZOLE TABLETS, USP [Suspect]
     Active Substance: METHIMAZOLE
     Indication: BASEDOW^S DISEASE
     Dosage: 7.5 MG, QOD
     Route: 065
     Dates: end: 20170322

REACTIONS (6)
  - Palpitations [Recovering/Resolving]
  - Diarrhoea [Recovered/Resolved]
  - Malaise [Recovering/Resolving]
  - Abdominal pain upper [Recovered/Resolved]
  - Drug ineffective [Unknown]
  - Chills [Recovering/Resolving]
